FAERS Safety Report 9828870 (Version 1)
Quarter: 2014Q1

REPORT INFORMATION
  Report Type: Spontaneous
  Country: US (occurrence: US)
  Receive Date: 20140118
  Receipt Date: 20140118
  Transmission Date: 20141002
  Serious: No
  Sender: FDA-Public Use
  Company Number: US-B.I. PHARMACEUTICALS,INC./RIDGEFIELD-2014-BI-01178BP

PATIENT
  Age: 48 Year
  Sex: Male

DRUGS (1)
  1. JENTADUETO [Suspect]
     Indication: BLOOD GLUCOSE INCREASED
     Dosage: STRENGTH: 2.5 MG / 1000 MG; DAILY DOSE: 5 MG / 2000 MG
     Route: 048
     Dates: start: 201312

REACTIONS (1)
  - Pain in extremity [Not Recovered/Not Resolved]
